FAERS Safety Report 4920411-5 (Version None)
Quarter: 2006Q1

REPORT INFORMATION
  Report Type: 
  Country: None (occurrence: None)
  Receive Date: 20060223
  Receipt Date: 20060210
  Transmission Date: 20060701
  Serious: Yes (Hospitalization)
  Sender: FDA-Public Use
  Company Number: US-MERCK-0602USA03999

PATIENT
  Age: 54 Year
  Sex: Female
  Weight: 55 kg

DRUGS (1)
  1. VIOXX [Suspect]
     Indication: PAIN
     Route: 065
     Dates: start: 20000331, end: 20030113

REACTIONS (12)
  - ACUTE MYOCARDIAL INFARCTION [None]
  - ANXIETY [None]
  - ARTERIOSCLEROSIS CORONARY ARTERY [None]
  - AXILLARY PAIN [None]
  - BACK PAIN [None]
  - BODY TEMPERATURE INCREASED [None]
  - BONE PAIN [None]
  - CARDIAC MURMUR [None]
  - COUGH [None]
  - DERMATITIS ALLERGIC [None]
  - DIABETES MELLITUS [None]
  - HYPOTENSION [None]
